FAERS Safety Report 10307570 (Version 1)
Quarter: 2014Q3

REPORT INFORMATION
  Report Type: Spontaneous
  Country: US (occurrence: US)
  Receive Date: 20140716
  Receipt Date: 20140716
  Transmission Date: 20150326
  Serious: No
  Sender: FDA-Public Use
  Company Number: US-MYLANLABS-2014S1012917

PATIENT
  Age: 28 Year
  Sex: Female
  Weight: 54.43 kg

DRUGS (1)
  1. LEVONORGESTREL AND ETHINYL ESTRADIOL TABLETS USP [Suspect]
     Active Substance: ETHINYL ESTRADIOL\LEVONORGESTREL
     Indication: CONTRACEPTION
     Route: 048

REACTIONS (1)
  - Fatigue [Not Recovered/Not Resolved]
